FAERS Safety Report 12825338 (Version 2)
Quarter: 2016Q4

REPORT INFORMATION
  Report Type: Report from Study
  Country: US (occurrence: US)
  Receive Date: 20161006
  Receipt Date: 20161014
  Transmission Date: 20170207
  Serious: Yes (Hospitalization, Other)
  Sender: FDA-Public Use
  Company Number: US-009507513-1610USA000114

PATIENT
  Age: 79 Year
  Sex: Male
  Weight: 66.75 kg

DRUGS (28)
  1. XELODA [Suspect]
     Active Substance: CAPECITABINE
     Dosage: 3500 MG, QD
     Route: 048
     Dates: start: 20151223
  2. PLAVIX [Concomitant]
     Active Substance: CLOPIDOGREL BISULFATE
     Dosage: UNK
  3. LIPITOR [Concomitant]
     Active Substance: ATORVASTATIN CALCIUM
     Dosage: UNK
  4. MIRALAX [Concomitant]
     Active Substance: POLYETHYLENE GLYCOL 3350
     Dosage: UNK
  5. REMERON [Suspect]
     Active Substance: MIRTAZAPINE
     Indication: APPETITE DISORDER
     Dosage: 30 MG, HS
     Route: 048
     Dates: start: 201409, end: 20151202
  6. RUXOLITINIB [Suspect]
     Active Substance: RUXOLITINIB
     Indication: PANCREATIC CARCINOMA METASTATIC
     Dosage: 15 MG, BID
     Route: 048
     Dates: start: 20151119, end: 20151202
  7. GLYBURIDE. [Concomitant]
     Active Substance: GLYBURIDE
     Dosage: UNK
  8. SYMBICORT [Concomitant]
     Active Substance: BUDESONIDE\FORMOTEROL FUMARATE DIHYDRATE
     Dosage: UNK
  9. SCHIFF MEGARED OMEGA-3 KRILL OIL [Concomitant]
     Dosage: UNK
  10. XELODA [Suspect]
     Active Substance: CAPECITABINE
     Indication: PANCREATIC CARCINOMA METASTATIC
     Dosage: 3500 MG, QD
     Route: 048
     Dates: start: 20151119, end: 20151201
  11. SINGULAIR [Concomitant]
     Active Substance: MONTELUKAST SODIUM
     Dosage: UNK
     Route: 048
  12. ZANTAC [Concomitant]
     Active Substance: RANITIDINE HYDROCHLORIDE
     Dosage: UNK
     Dates: start: 20151125
  13. GLUCOPHAGE [Concomitant]
     Active Substance: METFORMIN HYDROCHLORIDE
     Dosage: UNK
  14. AVODART [Concomitant]
     Active Substance: DUTASTERIDE
     Dosage: UNK
  15. DOCUSATE SODIUM. [Concomitant]
     Active Substance: DOCUSATE SODIUM
     Dosage: UNK
  16. RUXOLITINIB [Suspect]
     Active Substance: RUXOLITINIB
     Dosage: 15 MG, BID
     Route: 048
     Dates: start: 20151217
  17. NYSTATIN. [Concomitant]
     Active Substance: NYSTATIN
     Dosage: UNK
     Dates: start: 20151126
  18. REMERON [Suspect]
     Active Substance: MIRTAZAPINE
     Indication: ANTIDEPRESSANT THERAPY
     Dosage: 15 MG, HS
     Route: 048
     Dates: start: 20151206
  19. REMERON [Suspect]
     Active Substance: MIRTAZAPINE
     Dosage: 30 MG, HS
     Route: 048
     Dates: start: 201409, end: 20151202
  20. MAGNESIUM (UNSPECIFIED) [Concomitant]
     Active Substance: MAGNESIUM
  21. VITAMIN D [Concomitant]
     Active Substance: CHOLECALCIFEROL
     Dosage: UNK
  22. VITAMINS (UNSPECIFIED) [Concomitant]
     Active Substance: VITAMINS
     Dosage: UNK
  23. CYANOCOBALAMIN. [Concomitant]
     Active Substance: CYANOCOBALAMIN
     Dosage: UNK
  24. FLOMAX [Concomitant]
     Active Substance: TAMSULOSIN HYDROCHLORIDE
     Dosage: UNK
  25. PROTONIX [Concomitant]
     Active Substance: PANTOPRAZOLE SODIUM
     Dosage: UNK
  26. VERAMYST [Concomitant]
     Active Substance: FLUTICASONE FUROATE
     Dosage: UNK
  27. INSULIN [Concomitant]
     Active Substance: INSULIN NOS
     Dosage: UNK
     Dates: start: 20151020
  28. PREDNISONE. [Concomitant]
     Active Substance: PREDNISONE
     Dosage: UNK
     Route: 048
     Dates: start: 20151029, end: 20151117

REACTIONS (6)
  - Subdural haematoma [Unknown]
  - Hyponatraemia [Recovered/Resolved]
  - Pyrexia [Unknown]
  - Syncope [Unknown]
  - Stomatitis [Recovered/Resolved]
  - Dehydration [Unknown]

NARRATIVE: CASE EVENT DATE: 20151126
